FAERS Safety Report 11116476 (Version 3)
Quarter: 2015Q2

REPORT INFORMATION
  Report Type: Spontaneous
  Country: JP (occurrence: JP)
  Receive Date: 20150515
  Receipt Date: 20150609
  Transmission Date: 20150821
  Serious: Yes (Other)
  Sender: FDA-Public Use
  Company Number: JP-GLAXOSMITHKLINE-JP2015JPN063329

PATIENT
  Age: 58 Year
  Sex: Female

DRUGS (6)
  1. CISPLATIN. [Concomitant]
     Active Substance: CISPLATIN
     Dosage: 10 MG, UNK
     Dates: start: 20150423, end: 20150423
  2. REVOLADE [Suspect]
     Active Substance: ELTROMBOPAG
     Indication: IMMUNE THROMBOCYTOPENIC PURPURA
     Dosage: 25 MG, UNK
     Route: 048
     Dates: start: 201201, end: 20150511
  3. CISPLATIN. [Concomitant]
     Active Substance: CISPLATIN
     Dosage: 10 MG, UNK
     Dates: start: 20150424, end: 20150424
  4. CISPLATIN. [Concomitant]
     Active Substance: CISPLATIN
     Dosage: 10 MG, UNK
     Dates: start: 20150427, end: 20150427
  5. PREDONINE [Concomitant]
     Active Substance: PREDNISOLONE\PREDNISOLONE ACETATE\PREDNISOLONE SODIUM SUCCINATE
     Dosage: 10 MG, UNK
  6. PREDONINE [Concomitant]
     Active Substance: PREDNISOLONE\PREDNISOLONE ACETATE\PREDNISOLONE SODIUM SUCCINATE
     Dosage: 10 MG, UNK

REACTIONS (2)
  - Platelet count decreased [Not Recovered/Not Resolved]
  - Adenocarcinoma of the cervix [Unknown]

NARRATIVE: CASE EVENT DATE: 20150508
